FAERS Safety Report 12493199 (Version 1)
Quarter: 2016Q2

REPORT INFORMATION
  Report Type: Other
  Country: IE (occurrence: IE)
  Receive Date: 20160623
  Receipt Date: 20160623
  Transmission Date: 20160815
  Serious: Yes (Other)
  Sender: FDA-Public Use
  Company Number: IE-PURDUE PHARMA-USA-2016-0131733

PATIENT
  Age: 68 Year
  Sex: Male

DRUGS (2)
  1. OXYCODONE HYDROCHLORIDE (SIMILAR TO NDA 22-272) [Suspect]
     Active Substance: OXYCODONE HYDROCHLORIDE
     Indication: PRODUCT USED FOR UNKNOWN INDICATION
     Dosage: 20 MG, BID
     Route: 048
  2. DIAZEPAM. [Suspect]
     Active Substance: DIAZEPAM
     Indication: PRODUCT USED FOR UNKNOWN INDICATION
     Dosage: 5 MG, TID
     Route: 048

REACTIONS (7)
  - Encephalopathy [Unknown]
  - Drug interaction [Unknown]
  - Confusional state [Not Recovered/Not Resolved]
  - Movement disorder [Unknown]
  - Anal sphincter atony [Unknown]
  - Delirium [Unknown]
  - Somnolence [Unknown]
